FAERS Safety Report 6504504-7 (Version None)
Quarter: 2009Q4

REPORT INFORMATION
  Report Type: 
  Country: None (occurrence: None)
  Receive Date: 20091215
  Receipt Date: 20091204
  Transmission Date: 20100525
  Serious: Yes (Hospitalization)
  Sender: FDA-Public Use
  Company Number: 2009AC000123

PATIENT
  Age: 56 Year
  Sex: Male

DRUGS (40)
  1. DIGOXIN [Suspect]
     Dosage: 0.25 MG; QD; PO
     Route: 048
     Dates: start: 20060101
  2. VITAMIN C [Concomitant]
  3. LASIX [Concomitant]
  4. POTASSIUM [Concomitant]
  5. LISINOPRIL [Concomitant]
  6. PLAVIX [Concomitant]
  7. METOLAZINE [Concomitant]
  8. NADOLOL [Concomitant]
  9. ALDACTONE [Concomitant]
  10. ADVAIR DISKUS 100/50 [Concomitant]
  11. ZETIA [Concomitant]
  12. PREDNISONE [Concomitant]
  13. CIPRO [Concomitant]
  14. GABAPENTIN [Concomitant]
  15. PROTONIX [Concomitant]
  16. HYDROCODONE [Concomitant]
  17. SPIRONOLACTONE [Concomitant]
  18. TEMAZEPAM [Concomitant]
  19. SPIRIVA [Concomitant]
  20. AVELOX [Concomitant]
  21. ALPRAZOLAM [Concomitant]
  22. METRONIDAZOLE [Concomitant]
  23. BUSIPRONE [Concomitant]
  24. PLAVIX [Concomitant]
  25. ATROPINE [Concomitant]
  26. LANTUS [Concomitant]
  27. VANCOMYCIN HCL [Concomitant]
  28. FUROSEMIDE [Concomitant]
  29. ALBUETEROL [Concomitant]
  30. LISINOPRIL [Concomitant]
  31. ASPIRIN [Concomitant]
  32. NITROGLYCERIN [Concomitant]
  33. BUSPAR [Concomitant]
  34. MULTI-VITAMIN [Concomitant]
  35. LOVAZA [Concomitant]
  36. POTASSIUM CHLORIDE [Concomitant]
  37. OXYGEN [Concomitant]
  38. XANEX [Concomitant]
  39. ACTOS [Concomitant]
  40. GLYBURIDE [Concomitant]

REACTIONS (20)
  - ANGINA PECTORIS [None]
  - ARTERIOSCLEROSIS [None]
  - BRONCHITIS [None]
  - CARDIAC ARREST [None]
  - CARDIOMYOPATHY [None]
  - CHEST DISCOMFORT [None]
  - CHRONIC OBSTRUCTIVE PULMONARY DISEASE [None]
  - COUGH [None]
  - DYSPNOEA [None]
  - ECONOMIC PROBLEM [None]
  - HYPERLIPIDAEMIA [None]
  - HYPOTENSION [None]
  - MALAISE [None]
  - MULTIPLE INJURIES [None]
  - MYOCARDIAL INFARCTION [None]
  - PLEURAL EFFUSION [None]
  - PULMONARY HYPERTENSION [None]
  - RESPIRATORY DISTRESS [None]
  - SURGERY [None]
  - TACHYCARDIA [None]
